FAERS Safety Report 13051888 (Version 1)
Quarter: 2016Q4

REPORT INFORMATION
  Report Type: Spontaneous
  Country: NZ (occurrence: NZ)
  Receive Date: 20161221
  Receipt Date: 20161221
  Transmission Date: 20170207
  Serious: Yes (Other)
  Sender: FDA-Public Use
  Company Number: PHHY2016NZ173258

PATIENT
  Age: 52 Year
  Sex: Male

DRUGS (5)
  1. ALLOPURINOL. [Concomitant]
     Active Substance: ALLOPURINOL
     Indication: PRODUCT USED FOR UNKNOWN INDICATION
     Route: 048
  2. CARBAMAZEPINE. [Suspect]
     Active Substance: CARBAMAZEPINE
     Indication: PRODUCT USED FOR UNKNOWN INDICATION
     Route: 048
  3. TRIAZOLAM. [Concomitant]
     Active Substance: TRIAZOLAM
     Indication: PRODUCT USED FOR UNKNOWN INDICATION
     Route: 048
  4. CILAZAPRIL [Concomitant]
     Active Substance: CILAZAPRIL ANHYDROUS
     Indication: PRODUCT USED FOR UNKNOWN INDICATION
     Route: 048
  5. DILTIAZEM. [Concomitant]
     Active Substance: DILTIAZEM
     Indication: PRODUCT USED FOR UNKNOWN INDICATION
     Route: 048

REACTIONS (3)
  - Cognitive disorder [Unknown]
  - Ataxia [Unknown]
  - Disturbance in attention [Unknown]
